FAERS Safety Report 6332143-X (Version None)
Quarter: 2009Q3

REPORT INFORMATION
  Report Type: 
  Country: None (occurrence: None)
  Receive Date: 20090828
  Receipt Date: 20090824
  Transmission Date: 20100115
  Serious: Yes (Other)
  Sender: FDA-Public Use
  Company Number: US-ABBOTT-09P-163-0584016-00

PATIENT
  Sex: Female
  Weight: 68.1 kg

DRUGS (8)
  1. HUMIRA [Suspect]
     Indication: CROHN'S DISEASE
     Dates: start: 20090202, end: 20090218
  2. HUMIRA [Suspect]
     Dates: start: 20090219, end: 20090301
  3. PRENATAL [Concomitant]
     Indication: DRUG USE FOR UNKNOWN INDICATION
     Route: 048
     Dates: start: 20090316, end: 20090611
  4. BIRTH CONTROL PILLS [Concomitant]
     Indication: DRUG USE FOR UNKNOWN INDICATION
     Route: 048
     Dates: start: 20090213, end: 20090213
  5. CELEXA [Concomitant]
     Indication: ANXIETY
     Route: 048
     Dates: start: 20090211, end: 20090316
  6. CAFFEINE CITRATE [Concomitant]
     Indication: DRUG USE FOR UNKNOWN INDICATION
     Dosage: 1 SERVING
     Route: 048
     Dates: start: 20090211, end: 20090611
  7. PREDNISONE [Concomitant]
     Indication: CROHN'S DISEASE
     Route: 048
     Dates: start: 20090401, end: 20090611
  8. TYLENOL (CAPLET) [Concomitant]
     Indication: HEADACHE
     Dosage: 1 PILL EVERY 1.5 MONTHS
     Dates: start: 20090318, end: 20090611

REACTIONS (1)
  - ABORTION SPONTANEOUS [None]
